FAERS Safety Report 7299908-1 (Version None)
Quarter: 2011Q1

REPORT INFORMATION
  Report Type: 
  Country: None (occurrence: None)
  Receive Date: 20110217
  Receipt Date: 20110207
  Transmission Date: 20110831
  Serious: Yes (Life-Threatening, Hospitalization)
  Sender: FDA-Public Use
  Company Number: US-BAYER-200939705NA

PATIENT
  Sex: Female
  Weight: 75 kg

DRUGS (4)
  1. VOLTAREN [Concomitant]
     Indication: PRODUCT USED FOR UNKNOWN INDICATION
  2. YAZ [Suspect]
     Indication: MENSTRUATION IRREGULAR
     Dosage: 1 DF, UNK
     Route: 048
     Dates: start: 20090215, end: 20090501
  3. PERCOCET [Concomitant]
     Indication: PRODUCT USED FOR UNKNOWN INDICATION
  4. YAZ [Suspect]

REACTIONS (3)
  - PULMONARY EMBOLISM [None]
  - COAGULOPATHY [None]
  - PAIN [None]
